FAERS Safety Report 11354661 (Version 1)
Quarter: 2015Q3

REPORT INFORMATION
  Report Type: Spontaneous
  Country: US (occurrence: US)
  Receive Date: 20150807
  Receipt Date: 20150807
  Transmission Date: 20151125
  Serious: No
  Sender: FDA-Public Use
  Company Number: US-JNJFOC-20150308042

PATIENT
  Sex: Female

DRUGS (2)
  1. DITROPAN [Suspect]
     Active Substance: OXYBUTYNIN CHLORIDE
     Indication: PRODUCT USED FOR UNKNOWN INDICATION
     Route: 065
  2. HUMIRA [Suspect]
     Active Substance: ADALIMUMAB
     Indication: JUVENILE IDIOPATHIC ARTHRITIS
     Dosage: 2008 OR 2009
     Route: 065

REACTIONS (7)
  - Hyperaesthesia [Unknown]
  - Pruritus [Unknown]
  - Dandruff [Unknown]
  - Pruritus generalised [Unknown]
  - Thirst [Unknown]
  - Pain in extremity [Unknown]
  - Hypersensitivity [Unknown]
